FAERS Safety Report 17043398 (Version 2)
Quarter: 2020Q1

REPORT INFORMATION
  Report Type: Report from Study
  Country: US (occurrence: US)
  Receive Date: 20191118
  Receipt Date: 20200130
  Transmission Date: 20200409
  Serious: No
  Sender: FDA-Public Use
  Company Number: NVSC2019US039533

PATIENT
  Age: 55 Year
  Sex: Female

DRUGS (2)
  1. COSENTYX [Suspect]
     Active Substance: SECUKINUMAB
     Indication: PSORIATIC ARTHROPATHY
     Route: 065
  2. COSENTYX [Suspect]
     Active Substance: SECUKINUMAB
     Dosage: 1 DF, Q4W
     Route: 065

REACTIONS (2)
  - Arthralgia [Unknown]
  - Drug ineffective [Unknown]
